FAERS Safety Report 8582917-X (Version None)
Quarter: 2012Q3

REPORT INFORMATION
  Report Type: 
  Country: None (occurrence: None)
  Receive Date: 20120809
  Receipt Date: 20120730
  Transmission Date: 20120928
  Serious: No
  Sender: FDA-Public Use
  Company Number: CA-ASTRAZENECA-2012SE53921

PATIENT
  Age: 85 Year
  Sex: Female

DRUGS (1)
  1. BUDESONIDE [Suspect]
     Indication: COLITIS MICROSCOPIC
     Route: 048
     Dates: start: 20120726

REACTIONS (5)
  - HEADACHE [None]
  - ERYTHEMA [None]
  - SLEEP DISORDER DUE TO GENERAL MEDICAL CONDITION, INSOMNIA TYPE [None]
  - HYPERHIDROSIS [None]
  - NAUSEA [None]
